FAERS Safety Report 6312734-2 (Version None)
Quarter: 2009Q3

REPORT INFORMATION
  Report Type: 
  Country: None (occurrence: None)
  Receive Date: 20090818
  Receipt Date: 20090806
  Transmission Date: 20100115
  Serious: Yes (Hospitalization)
  Sender: FDA-Public Use
  Company Number: US-BRISTOL-MYERS SQUIBB COMPANY-14728927

PATIENT
  Age: 59 Year
  Sex: Male
  Weight: 103 kg

DRUGS (21)
  1. CETUXIMAB [Suspect]
     Indication: NON-SMALL CELL LUNG CANCER
     Dosage: PT WITHDRAWN FROM STUDY ON 23JUL09
     Route: 042
     Dates: start: 20090709, end: 20090716
  2. CARBOPLATIN [Suspect]
     Indication: NON-SMALL CELL LUNG CANCER
     Dosage: PT WITHDRAWN FROM STUDY ON 23JUL09
     Route: 042
     Dates: start: 20090709, end: 20090709
  3. GEMCITABINE [Suspect]
     Indication: NON-SMALL CELL LUNG CANCER
     Dosage: PT WITHDRAWN FROM STUDY ON 23JUL09
     Route: 042
     Dates: start: 20090709, end: 20090716
  4. ASPIRIN [Suspect]
     Dosage: PT WITHDRAWN FROM STUDY ON 23JUL09
     Route: 065
     Dates: start: 20090723, end: 20090730
  5. METOCLOPRAMIDE [Concomitant]
     Dosage: 5MG, 1 IN 6 HR
     Route: 065
  6. BUPROPION HCL [Concomitant]
  7. SINGULAIR [Concomitant]
     Route: 065
  8. TOPROL-XL [Concomitant]
     Route: 065
  9. LIPITOR [Concomitant]
     Route: 065
  10. PREVACID [Concomitant]
     Route: 065
  11. LISINOPRIL [Concomitant]
     Route: 065
  12. ALVESCO [Concomitant]
     Route: 065
  13. COMBIVENT [Concomitant]
     Dosage: 1 DF = 2 PUFFS
     Route: 065
  14. FLUNISOLIDE [Concomitant]
     Route: 065
  15. FLUTICASONE [Concomitant]
     Route: 065
  16. ALBUTEROL [Concomitant]
     Route: 055
  17. ZYRTEC [Concomitant]
     Route: 065
  18. COMPAZINE [Concomitant]
     Route: 065
  19. ZOFRAN [Concomitant]
     Route: 065
  20. CLARITIN [Concomitant]
     Route: 065
  21. PREDNISONE [Concomitant]
     Route: 065

REACTIONS (3)
  - HAEMOPTYSIS [None]
  - NEUTROPENIA [None]
  - THROMBOCYTOPENIA [None]
